FAERS Safety Report 5026668-7 (Version None)
Quarter: 2006Q2

REPORT INFORMATION
  Report Type: 
  Country: None (occurrence: None)
  Receive Date: 20060615
  Receipt Date: 20060607
  Transmission Date: 20061013
  Serious: Yes (Life-Threatening, Hospitalization)
  Sender: FDA-Public Use
  Company Number: 2006/01539

PATIENT
  Age: 29 Month
  Sex: Male

DRUGS (5)
  1. SAWACILLIN [Suspect]
     Indication: STREPTOCOCCAL INFECTION
     Route: 048
  2. ASPIRIN [Concomitant]
     Indication: KAWASAKI'S DISEASE
     Dates: start: 20060301
  3. FROBEN [Concomitant]
     Indication: KAWASAKI'S DISEASE
     Dates: start: 20060301
  4. CLARITHROMYCIN [Concomitant]
     Indication: UPPER RESPIRATORY TRACT INFLAMMATION
  5. IMMUNE GLOBULIN INTRAVENOUS (HUMAN) [Concomitant]
     Indication: KAWASAKI'S DISEASE
     Dates: start: 20060301

REACTIONS (3)
  - DYSPNOEA [None]
  - HEPATIC FUNCTION ABNORMAL [None]
  - RASH [None]
